FAERS Safety Report 6012833-9 (Version None)
Quarter: 2008Q4

REPORT INFORMATION
  Report Type: 
  Country: None (occurrence: None)
  Receive Date: 20081219
  Receipt Date: 20081212
  Transmission Date: 20090506
  Serious: Yes (Hospitalization, Other)
  Sender: FDA-Public Use
  Company Number: US-BAYER-200829684NA

PATIENT
  Age: 35 Year
  Sex: Female
  Weight: 78 kg

DRUGS (1)
  1. MIRENA [Suspect]
     Indication: CONTRACEPTION
     Route: 015
     Dates: start: 20071003, end: 20080702

REACTIONS (4)
  - AMENORRHOEA [None]
  - BACK INJURY [None]
  - PROCEDURAL PAIN [None]
  - UTERINE RUPTURE [None]
